FAERS Safety Report 18657951 (Version 2)
Quarter: 2021Q2

REPORT INFORMATION
  Report Type: Report from Study
  Country: US (occurrence: US)
  Receive Date: 20201224
  Receipt Date: 20210512
  Transmission Date: 20210717
  Serious: No
  Sender: FDA-Public Use
  Company Number: US-ACADIA PHARMACEUTICALS INC.-ACA-2020-PIM-003843

PATIENT
  Age: 39 Year
  Sex: Male

DRUGS (4)
  1. NUPLAZID [Suspect]
     Active Substance: PIMAVANSERIN TARTRATE
     Indication: PARKINSON^S DISEASE
  2. NUPLAZID [Suspect]
     Active Substance: PIMAVANSERIN TARTRATE
     Indication: HALLUCINATION
     Dosage: 34 MILLIGRAM, QD
     Route: 048
     Dates: start: 20200826
  3. NUPLAZID [Suspect]
     Active Substance: PIMAVANSERIN TARTRATE
     Indication: HALLUCINATION
     Dosage: 54 MILLIGRAM (34MG CAPSULE+TWO 10MG TABLETS), QD
     Route: 048
     Dates: start: 20201111
  4. NUPLAZID [Suspect]
     Active Substance: PIMAVANSERIN TARTRATE
     Indication: PARKINSON^S DISEASE
     Dosage: 54 MILLIGRAM(34MG CAPSULE+TWO 10MG TABLETS), QD
     Route: 048
     Dates: start: 20201111

REACTIONS (3)
  - Obsessive-compulsive disorder [Unknown]
  - Urinary tract infection [Unknown]
  - Overdose [Unknown]

NARRATIVE: CASE EVENT DATE: 20201111
